FAERS Safety Report 4318985-0 (Version None)
Quarter: 2004Q1

REPORT INFORMATION
  Report Type: 
  Country: None (occurrence: None)
  Receive Date: 20040317
  Receipt Date: 20040317
  Transmission Date: 20041129
  Serious: Yes (Hospitalization)
  Sender: FDA-Public Use
  Company Number: None

PATIENT
  Age: 77 Year
  Sex: Male

DRUGS (3)
  1. DALTEPARIN 1/24 @ 1100 50000U, @ 2000 7500U; 1/25 @ 0800 7500 [Suspect]
     Dosage: 1/24@1100 5000U, @2000 7500U; 1/25@0800 7500
  2. PROTAMINE SULFATE [Concomitant]
  3. OCTREOTIDE ACETATE [Concomitant]

REACTIONS (1)
  - GASTROINTESTINAL HAEMORRHAGE [None]
